FAERS Safety Report 5989547-4 (Version None)
Quarter: 2008Q4

REPORT INFORMATION
  Report Type: 
  Country: None (occurrence: None)
  Receive Date: 20081208
  Receipt Date: 20081125
  Transmission Date: 20090506
  Serious: Yes (Hospitalization)
  Sender: FDA-Public Use
  Company Number: 233499J08USA

PATIENT
  Age: 52 Year
  Sex: Female

DRUGS (8)
  1. REBIF [Suspect]
     Indication: MULTIPLE SCLEROSIS
     Dosage: 44 MCG, 3 IN 1 WEEKS, SUBCUTANEOUS
     Route: 058
     Dates: start: 20071102
  2. METOPROLOL (METOPROLOL /00376901/) [Concomitant]
  3. WELCHOL [Concomitant]
  4. ZETIA [Concomitant]
  5. NEURONTIN [Concomitant]
  6. FISH OIL (FISH OIL) [Concomitant]
  7. CYMBALTA [Concomitant]
  8. PRILOSEC [Concomitant]

REACTIONS (17)
  - ANKLE FRACTURE [None]
  - BALANCE DISORDER [None]
  - CARDIAC ENZYMES INCREASED [None]
  - CHEST DISCOMFORT [None]
  - CHEST PAIN [None]
  - CONDITION AGGRAVATED [None]
  - FATIGUE [None]
  - FLUSHING [None]
  - GASTROOESOPHAGEAL REFLUX DISEASE [None]
  - HEADACHE [None]
  - HEART RATE INCREASED [None]
  - HYPERTENSION [None]
  - HYPOAESTHESIA [None]
  - NERVE COMPRESSION [None]
  - PAIN IN JAW [None]
  - PERIPHERAL COLDNESS [None]
  - RIB FRACTURE [None]
